FAERS Safety Report 11854109 (Version 1)
Quarter: 2015Q4

REPORT INFORMATION
  Report Type: Spontaneous
  Country: GB (occurrence: GB)
  Receive Date: 20151220
  Receipt Date: 20151220
  Transmission Date: 20160305
  Serious: Yes (Hospitalization)
  Sender: FDA-Public Use
  Company Number: GB-DEXPHARM-20153112

PATIENT
  Age: 76 Year
  Sex: Female

DRUGS (13)
  1. OMEPRAZOLE. [Suspect]
     Active Substance: OMEPRAZOLE
     Indication: PRODUCT USED FOR UNKNOWN INDICATION
     Dosage: EVERY MORNING
  2. AMLODIPINE [Concomitant]
     Active Substance: AMLODIPINE BESYLATE
  3. ATENOLOL. [Concomitant]
     Active Substance: ATENOLOL
  4. GLICLAZIDE [Concomitant]
     Active Substance: GLICLAZIDE
  5. TRAMADOL. [Concomitant]
     Active Substance: TRAMADOL
  6. INDAPAMIDE. [Suspect]
     Active Substance: INDAPAMIDE
     Dosage: EVERY MORNING
  7. CALCICHEW D3 [Concomitant]
     Active Substance: CALCIUM\CHOLECALCIFEROL
  8. CLOPIDOGREL [Concomitant]
     Active Substance: CLOPIDOGREL BISULFATE
  9. CITALOPRAM [Suspect]
     Active Substance: CITALOPRAM HYDROBROMIDE
     Dosage: EVERY MORNING
  10. ATORVASTATIN [Concomitant]
     Active Substance: ATORVASTATIN
  11. INSULIN GLARGINE [Concomitant]
     Active Substance: INSULIN GLARGINE
  12. IRBESARTAN. [Concomitant]
     Active Substance: IRBESARTAN
  13. METFORMIN [Concomitant]
     Active Substance: METFORMIN HYDROCHLORIDE

REACTIONS (4)
  - Hyponatraemia [Recovering/Resolving]
  - Vomiting [Recovering/Resolving]
  - Diarrhoea [Recovering/Resolving]
  - Malaise [Recovering/Resolving]

NARRATIVE: CASE EVENT DATE: 20151127
